FAERS Safety Report 24395797 (Version 3)
Quarter: 2024Q4

REPORT INFORMATION
  Report Type: Spontaneous
  Country: CN (occurrence: CN)
  Receive Date: 20241004
  Receipt Date: 20241022
  Transmission Date: 20250114
  Serious: Yes (Death, Hospitalization)
  Sender: ASTELLAS
  Company Number: CN-ASTELLAS-2024-AER-010336

PATIENT
  Age: 78 Year
  Sex: Male

DRUGS (2)
  1. CRESEMBA [Suspect]
     Active Substance: ISAVUCONAZONIUM SULFATE
     Indication: Product used for unknown indication
     Route: 050
     Dates: start: 20240705, end: 20240707
  2. CRESEMBA [Suspect]
     Active Substance: ISAVUCONAZONIUM SULFATE
     Route: 048
     Dates: start: 20240708, end: 20240713

REACTIONS (5)
  - Multiple organ dysfunction syndrome [Fatal]
  - Dyskinesia [Recovered/Resolved]
  - Somnolence [Unknown]
  - Dysphagia [Unknown]
  - Inappropriate schedule of product administration [Unknown]

NARRATIVE: CASE EVENT DATE: 20240705
